APPROVED DRUG PRODUCT: CICLOPIROX
Active Ingredient: CICLOPIROX
Strength: 0.77%
Dosage Form/Route: GEL;TOPICAL
Application: A078266 | Product #001 | TE Code: AB
Applicant: PADAGIS US LLC
Approved: Jan 7, 2009 | RLD: No | RS: No | Type: RX